FAERS Safety Report 19466621 (Version 1)
Quarter: 2021Q2

REPORT INFORMATION
  Report Type: Spontaneous
  Country: IT (occurrence: IT)
  Receive Date: 20210628
  Receipt Date: 20210628
  Transmission Date: 20210717
  Serious: Yes (Other)
  Sender: FDA-Public Use
  Company Number: IT-AMGEN-ITASP2021094629

PATIENT
  Age: 37 Year
  Sex: Female

DRUGS (13)
  1. EXEMESTANE PFIZER [Suspect]
     Active Substance: EXEMESTANE
     Indication: METASTASES TO LIVER
  2. TYVERB [Suspect]
     Active Substance: LAPATINIB
     Indication: PRODUCT USED FOR UNKNOWN INDICATION
     Dosage: UNK
     Route: 065
  3. TRASTUZUMAB. [Suspect]
     Active Substance: TRASTUZUMAB
     Indication: METASTASES TO LYMPH NODES
  4. TRASTUZUMAB. [Suspect]
     Active Substance: TRASTUZUMAB
     Indication: METASTASES TO LIVER
  5. DOCETAXEL. [Suspect]
     Active Substance: DOCETAXEL
     Indication: METASTASES TO LYMPH NODES
  6. TRASTUZUMAB. [Suspect]
     Active Substance: TRASTUZUMAB
     Indication: HER2 POSITIVE BREAST CANCER
     Dosage: 6 MILLIGRAM/KILOGRAM, Q3WK
     Route: 042
     Dates: start: 201804, end: 202004
  7. EXEMESTANE PFIZER [Suspect]
     Active Substance: EXEMESTANE
     Indication: HER2 POSITIVE BREAST CANCER
     Dosage: UNK
     Route: 065
     Dates: start: 201809, end: 202004
  8. PERTUZUMAB. [Suspect]
     Active Substance: PERTUZUMAB
     Indication: METASTASES TO LIVER
  9. DOCETAXEL. [Suspect]
     Active Substance: DOCETAXEL
     Indication: METASTASES TO LIVER
  10. EXEMESTANE PFIZER [Suspect]
     Active Substance: EXEMESTANE
     Indication: METASTASES TO LYMPH NODES
  11. PERTUZUMAB. [Suspect]
     Active Substance: PERTUZUMAB
     Indication: HER2 POSITIVE BREAST CANCER
     Dosage: 420 MILLIGRAM, Q3WK
     Route: 042
     Dates: start: 201804, end: 202004
  12. PERTUZUMAB. [Suspect]
     Active Substance: PERTUZUMAB
     Indication: METASTASES TO LYMPH NODES
  13. DOCETAXEL. [Suspect]
     Active Substance: DOCETAXEL
     Indication: HER2 POSITIVE BREAST CANCER
     Dosage: 75 MG/MQ, Q3WK
     Route: 042
     Dates: start: 201804

REACTIONS (10)
  - HER2 positive breast cancer [Recovering/Resolving]
  - Therapy partial responder [Unknown]
  - Malignant neoplasm progression [Recovering/Resolving]
  - Metastases to liver [Recovering/Resolving]
  - Metastases to lymph nodes [Recovering/Resolving]
  - Skin toxicity [Recovered/Resolved]
  - Breast pain [Recovering/Resolving]
  - Nipple exudate bloody [Recovering/Resolving]
  - Off label use [Unknown]
  - Diarrhoea [Recovered/Resolved]
